FAERS Safety Report 5505989-5 (Version None)
Quarter: 2007Q4

REPORT INFORMATION
  Report Type: 
  Country: None (occurrence: None)
  Receive Date: 20071101
  Receipt Date: 20071101
  Transmission Date: 20080405
  Serious: No
  Sender: FDA-Public Use
  Company Number: None

PATIENT
  Age: 19 Year
  Sex: Female
  Weight: 42 kg

DRUGS (3)
  1. DILAUDID [Suspect]
     Indication: PROCEDURAL PAIN
     Dosage: 1.2 MG Q1H PRN IV
     Route: 042
     Dates: start: 20071014, end: 20071016
  2. ZOLOFT [Concomitant]
  3. YASMIN [Concomitant]

REACTIONS (2)
  - RASH ERYTHEMATOUS [None]
  - RASH PAPULAR [None]
